FAERS Safety Report 13707938 (Version 2)
Quarter: 2017Q3

REPORT INFORMATION
  Report Type: Spontaneous
  Country: IL (occurrence: IL)
  Receive Date: 20170630
  Receipt Date: 20170710
  Transmission Date: 20171127
  Serious: Yes (Other)
  Sender: FDA-Public Use
  Company Number: IL-TEVA-781166ACC

PATIENT
  Age: 68 Year
  Sex: Female

DRUGS (1)
  1. ZOLEDRONIC ACID [Suspect]
     Active Substance: ZOLEDRONIC ACID
     Indication: OSTEOPOROSIS
     Route: 042

REACTIONS (8)
  - Aromatase inhibition therapy [Unknown]
  - Peripheral swelling [Unknown]
  - Tenosynovitis [Unknown]
  - Autoinflammatory disease [Unknown]
  - Crohn^s disease [Unknown]
  - Movement disorder [Unknown]
  - Tenderness [Unknown]
  - Synovitis [Unknown]
